FAERS Safety Report 5682857-X (Version None)
Quarter: 2008Q1

REPORT INFORMATION
  Report Type: 
  Country: None (occurrence: None)
  Receive Date: 20080327
  Receipt Date: 20080325
  Transmission Date: 20080703
  Serious: Yes (Hospitalization)
  Sender: FDA-Public Use
  Company Number: B0513033A

PATIENT
  Age: 67 Year
  Sex: Female

DRUGS (4)
  1. SAWACILLIN [Suspect]
     Dosage: 1500MG PER DAY
     Route: 048
     Dates: start: 20080116, end: 20080121
  2. KLARICID [Suspect]
     Dosage: 400MG PER DAY
     Route: 048
     Dates: start: 20080116, end: 20080121
  3. TAKEPRON [Suspect]
     Dosage: 60MG PER DAY
     Route: 048
     Dates: start: 20080116, end: 20080121
  4. GASTER D [Suspect]
     Indication: DUODENAL ULCER
     Dosage: 40MG PER DAY
     Route: 048
     Dates: start: 20071102, end: 20080121

REACTIONS (4)
  - DRUG ERUPTION [None]
  - ECZEMA [None]
  - INSOMNIA [None]
  - PRURITUS [None]
